FAERS Safety Report 16794833 (Version 3)
Quarter: 2019Q4

REPORT INFORMATION
  Report Type: Report from Study
  Country: CL (occurrence: CL)
  Receive Date: 20190911
  Receipt Date: 20191101
  Transmission Date: 20200122
  Serious: No
  Sender: FDA-Public Use
  Company Number: CL-BEH-2019106594

PATIENT
  Age: 59 Year
  Sex: Female

DRUGS (4)
  1. BERINERT [Suspect]
     Active Substance: HUMAN C1-ESTERASE INHIBITOR
     Dosage: UNK, TOT
     Route: 042
     Dates: start: 201906, end: 201906
  2. BERINERT [Suspect]
     Active Substance: HUMAN C1-ESTERASE INHIBITOR
     Indication: HEREDITARY ANGIOEDEMA
     Dosage: UNK
     Route: 042
     Dates: start: 201806
  3. BERINERT [Suspect]
     Active Substance: HUMAN C1-ESTERASE INHIBITOR
     Indication: HEREDITARY ANGIOEDEMA
     Dosage: UNK
     Route: 042
     Dates: start: 201806
  4. BERINERT [Suspect]
     Active Substance: HUMAN C1-ESTERASE INHIBITOR
     Dosage: UNK, TOT
     Route: 042
     Dates: start: 201906, end: 201906

REACTIONS (5)
  - Accident [Unknown]
  - Speech disorder [Unknown]
  - Tooth extraction [Unknown]
  - Feeling abnormal [Unknown]
  - Dental operation [Unknown]

NARRATIVE: CASE EVENT DATE: 201908
